APPROVED DRUG PRODUCT: DUOBRII
Active Ingredient: HALOBETASOL PROPIONATE; TAZAROTENE
Strength: 0.01%;0.045%
Dosage Form/Route: LOTION;TOPICAL
Application: N209354 | Product #001 | TE Code: AB
Applicant: BAUSCH HEALTH AMERICAS INC
Approved: Apr 25, 2019 | RLD: Yes | RS: Yes | Type: RX

PATENTS:
Patent 10478502 | Expires: Nov 2, 2031
Patent 10426787 | Expires: Jun 6, 2036
Patent 11648256 | Expires: Jun 6, 2036
Patent 11679115 | Expires: Jun 6, 2036
Patent 11839656 | Expires: Nov 2, 2031
Patent 11986527 | Expires: Nov 2, 2031
Patent 12076403 | Expires: Nov 2, 2031
Patent 10251895 | Expires: Jun 6, 2036
Patent 8809307 | Expires: Nov 2, 2031
Patent 11957753 | Expires: Nov 2, 2031